FAERS Safety Report 13074551 (Version 1)
Quarter: 2016Q4

REPORT INFORMATION
  Report Type: Spontaneous
  Country: US (occurrence: US)
  Receive Date: 20161230
  Receipt Date: 20161230
  Transmission Date: 20170207
  Serious: Yes (Hospitalization)
  Sender: FDA-Public Use
  Company Number: PHEH2016US033981

PATIENT
  Sex: Female
  Weight: 77.88 kg

DRUGS (1)
  1. AFINITOR [Suspect]
     Active Substance: EVEROLIMUS
     Indication: BREAST CANCER FEMALE
     Dosage: 10 MG, QD
     Route: 048
     Dates: start: 20161213

REACTIONS (8)
  - Rhinorrhoea [Unknown]
  - Stomatitis [Unknown]
  - Malaise [Unknown]
  - White blood cell count decreased [Unknown]
  - Dehydration [Unknown]
  - Pyrexia [Unknown]
  - Cough [Unknown]
  - Decreased appetite [Unknown]
